FAERS Safety Report 17955863 (Version 1)
Quarter: 2020Q2

REPORT INFORMATION
  Report Type: Spontaneous
  Country: US (occurrence: US)
  Receive Date: 20200626
  Receipt Date: 20200626
  Transmission Date: 20200714
  Serious: Yes (Other)
  Sender: FDA-Public Use
  Company Number: None

PATIENT
  Age: 56 Year
  Sex: Male
  Weight: 92.25 kg

DRUGS (2)
  1. PEROXIE CARE TARTAR CONTROL HEALTHY GUMS BAKING SODA AND PEROXIDE [Suspect]
     Active Substance: SODIUM FLUORIDE
     Indication: DENTAL CLEANING
     Route: 048
     Dates: start: 20200622, end: 20200623
  2. CENTRUM FOR MEN [Concomitant]

REACTIONS (3)
  - Pain [None]
  - Hypophagia [None]
  - Aphthous ulcer [None]

NARRATIVE: CASE EVENT DATE: 20200625
